FAERS Safety Report 23968969 (Version 1)
Quarter: 2024Q2

REPORT INFORMATION
  Report Type: Other
  Country: US (occurrence: US)
  Receive Date: 20240612
  Receipt Date: 20240612
  Transmission Date: 20240715
  Serious: Yes (Other)
  Sender: FDA-Public Use
  Company Number: US-Fagron Sterile Services-2158071

PATIENT

DRUGS (1)
  1. BUPIVACAINE HYDROCHLORIDE\FENTANYL CITRATE [Suspect]
     Active Substance: BUPIVACAINE HYDROCHLORIDE\FENTANYL CITRATE

REACTIONS (1)
  - Drug ineffective [Recovered/Resolved]
